FAERS Safety Report 15981080 (Version 1)
Quarter: 2019Q1

REPORT INFORMATION
  Report Type: Spontaneous
  Country: US (occurrence: US)
  Receive Date: 20190219
  Receipt Date: 20190219
  Transmission Date: 20190418
  Serious: No
  Sender: FDA-Public Use
  Company Number: US-ENDO PHARMACEUTICALS INC-2018-025820

PATIENT
  Sex: Male
  Weight: 136.96 kg

DRUGS (2)
  1. XIAFLEX [Suspect]
     Active Substance: COLLAGENASE CLOSTRIDIUM HISTOLYTICUM
     Indication: DUPUYTREN^S CONTRACTURE
     Dosage: ONE INJECTION INTO RIGHT LITTLE FINGER
     Route: 026
     Dates: start: 2015, end: 2015
  2. XIAFLEX [Suspect]
     Active Substance: COLLAGENASE CLOSTRIDIUM HISTOLYTICUM
     Dosage: TWO INJECTIONS INTO LEFT MIDDLE FINGER
     Route: 026
     Dates: start: 20150916, end: 20150916

REACTIONS (4)
  - Condition aggravated [Unknown]
  - Injection site pain [Unknown]
  - Dupuytren^s contracture [Unknown]
  - Drug effect decreased [Unknown]
